FAERS Safety Report 5222968-6 (Version None)
Quarter: 2007Q1

REPORT INFORMATION
  Report Type: 
  Country: None (occurrence: None)
  Receive Date: 20061208
  Receipt Date: 20060426
  Transmission Date: 20070707
  Serious: Yes (Other)
  Sender: FDA-Public Use
  Company Number: 2006056674

PATIENT
  Age: 41 Year
  Sex: Male
  Weight: 93.8946 kg

DRUGS (4)
  1. VIAGRA [Suspect]
     Indication: PEYRONIE'S DISEASE
     Dosage: (50 MG), ORAL
     Route: 048
     Dates: start: 20060101
  2. NEXIUM [Concomitant]
  3. NASONEX [Concomitant]
  4. MONTELUKAST SODIUM (MONTELUKAST SODIUM) [Concomitant]

REACTIONS (4)
  - ERECTILE DYSFUNCTION [None]
  - FLUSHING [None]
  - HEART RATE INCREASED [None]
  - POOR QUALITY SLEEP [None]
